FAERS Safety Report 4662588-5 (Version None)
Quarter: 2005Q2

REPORT INFORMATION
  Report Type: 
  Country: None (occurrence: None)
  Receive Date: 20050516
  Receipt Date: 20050510
  Transmission Date: 20051028
  Serious: Yes (Hospitalization)
  Sender: FDA-Public Use
  Company Number: 2005AP02730

PATIENT
  Age: 78 Year
  Sex: Male

DRUGS (8)
  1. TENORMIN [Suspect]
     Indication: HYPERTENSION
     Route: 048
     Dates: start: 20020411, end: 20040213
  2. REMINYL [Suspect]
     Indication: DEMENTIA ALZHEIMER'S TYPE
     Dates: start: 20030820, end: 20040213
  3. NITROGLYCERIN [Concomitant]
     Route: 060
  4. NITROGLYCERIN [Concomitant]
     Route: 048
  5. OXAZEPAM [Concomitant]
     Route: 048
  6. FLUNITRAZEPAM [Concomitant]
     Route: 048
  7. ACETYL SALICYLIC ACID USP BAT [Concomitant]
     Route: 048
  8. PRINZIDE [Concomitant]
     Route: 048

REACTIONS (6)
  - CARDIAC ARREST [None]
  - DIZZINESS [None]
  - FACE INJURY [None]
  - PETIT MAL EPILEPSY [None]
  - SYNCOPE [None]
  - VOMITING [None]
